FAERS Safety Report 5476733-5 (Version None)
Quarter: 2007Q4

REPORT INFORMATION
  Report Type: 
  Country: None (occurrence: None)
  Receive Date: 20071004
  Receipt Date: 20070925
  Transmission Date: 20080405
  Serious: Yes (Disabling)
  Sender: FDA-Public Use
  Company Number: HQWYE340927SEP07

PATIENT
  Sex: Female

DRUGS (4)
  1. EFFEXOR XR [Suspect]
     Indication: ANXIETY
     Route: 048
     Dates: start: 20070601, end: 20070820
  2. EFFEXOR XR [Suspect]
     Route: 048
     Dates: start: 20070821, end: 20070824
  3. EFFEXOR XR [Suspect]
     Route: 048
     Dates: start: 20070825, end: 20070831
  4. EFFEXOR XR [Suspect]
     Route: 048
     Dates: start: 20070901, end: 20070904

REACTIONS (7)
  - CONSTIPATION [None]
  - DRUG WITHDRAWAL SYNDROME [None]
  - DRY EYE [None]
  - MOTION SICKNESS [None]
  - NASAL CONGESTION [None]
  - NAUSEA [None]
  - VISION BLURRED [None]
